FAERS Safety Report 5608970-0 (Version None)
Quarter: 2008Q1

REPORT INFORMATION
  Report Type: 
  Country: None (occurrence: None)
  Receive Date: 20080131
  Receipt Date: 20080122
  Transmission Date: 20080703
  Serious: Yes (Other)
  Sender: FDA-Public Use
  Company Number: FR-ABBOTT-08P-056-0434890-00

PATIENT
  Sex: Male

DRUGS (2)
  1. KALETRA [Suspect]
     Indication: HIV INFECTION
     Dosage: DRINKABLE SOLUTION
     Route: 048
  2. TENOFOVIR DISOPROXIL [Suspect]
     Indication: HIV INFECTION
     Route: 048

REACTIONS (2)
  - ANAPHYLACTIC SHOCK [None]
  - RASH MACULAR [None]
